FAERS Safety Report 4797348-8 (Version None)
Quarter: 2005Q4

REPORT INFORMATION
  Report Type: 
  Country: None (occurrence: None)
  Receive Date: 20051013
  Receipt Date: 20051007
  Transmission Date: 20060501
  Serious: Yes (Hospitalization)
  Sender: FDA-Public Use
  Company Number: BR-JNJFOC-20051001988

PATIENT
  Age: 19 Year
  Sex: Female

DRUGS (4)
  1. IMOSEC [Suspect]
     Indication: SUICIDE ATTEMPT
  2. ACETYLSALICYLIC [Suspect]
     Indication: SUICIDE ATTEMPT
  3. DICLOFENAC [Suspect]
     Indication: SUICIDE ATTEMPT
  4. NITROFURANTOIN [Suspect]
     Indication: SUICIDE ATTEMPT
     Dosage: UNKNOWN DOSAGE

REACTIONS (5)
  - DIARRHOEA [None]
  - DRUG INTERACTION [None]
  - MULTIPLE DRUG OVERDOSE [None]
  - MYALGIA [None]
  - SUICIDE ATTEMPT [None]
